FAERS Safety Report 5718949-6 (Version None)
Quarter: 2008Q2

REPORT INFORMATION
  Report Type: 
  Country: None (occurrence: None)
  Receive Date: 20080423
  Receipt Date: 20080408
  Transmission Date: 20081010
  Serious: Yes (Disabling)
  Sender: FDA-Public Use
  Company Number: 2008S1005831

PATIENT
  Age: 76 Year
  Sex: Male

DRUGS (7)
  1. TEMAZEPAM [Suspect]
     Indication: INSOMNIA
     Dosage: 10 MG;
     Dates: start: 20080313, end: 20080316
  2. ASPIRIN [Concomitant]
  3. GLICLAZIDE [Concomitant]
  4. IBUPROFEN TABLETS [Concomitant]
  5. LISINOPRIL [Concomitant]
  6. OMEPRAZOLE [Concomitant]
  7. PARACETAMOL [Concomitant]

REACTIONS (7)
  - CHEST PAIN [None]
  - COUGH [None]
  - OESOPHAGEAL DISCOMFORT [None]
  - PHARYNGOLARYNGEAL PAIN [None]
  - SLEEP DISORDER DUE TO A GENERAL MEDICAL CONDITION [None]
  - STOMACH DISCOMFORT [None]
  - THROAT IRRITATION [None]
